FAERS Safety Report 9187403 (Version 2)
Quarter: 2013Q1

REPORT INFORMATION
  Report Type: Spontaneous
  Country: JP (occurrence: JP)
  Receive Date: 20130325
  Receipt Date: 20130325
  Transmission Date: 20140127
  Serious: Yes (Death, Life-Threatening, Hospitalization)
  Sender: FDA-Public Use
  Company Number: JP-BAYER-2012-135830

PATIENT
  Age: 76 Year
  Sex: Male
  Weight: 59 kg

DRUGS (7)
  1. NEXAVAR [Suspect]
     Indication: HEPATOCELLULAR CARCINOMA
     Dosage: DAILY DOSE 800 MG
     Route: 048
     Dates: start: 20111117, end: 20111121
  2. NEXAVAR [Suspect]
     Indication: HEPATOCELLULAR CARCINOMA
     Dosage: 600 MG DAILY DOSE
     Route: 048
     Dates: start: 20111122, end: 20120223
  3. NEXAVAR [Suspect]
     Indication: HEPATOCELLULAR CARCINOMA
     Dosage: 400 MG DAILY DOSE
     Route: 048
     Dates: start: 20120824, end: 20120921
  4. MIRIPLATIN [Suspect]
     Indication: HEPATOCELLULAR CARCINOMA
     Dosage: DAILY DOSE 6 ML
     Route: 013
     Dates: start: 20111024, end: 20111024
  5. MIRIPLATIN [Suspect]
     Indication: HEPATOCELLULAR CARCINOMA
     Dosage: 6 ML DAILY DOSE
     Dates: start: 20120926, end: 20120926
  6. PARIET [Concomitant]
     Indication: GASTROOESOPHAGEAL REFLUX DISEASE
     Dosage: DAILY DOSE 10 MG
     Route: 048
     Dates: end: 20121028
  7. KERATINAMIN [Concomitant]
     Indication: PROPHYLAXIS
     Dosage: UNK
     Route: 061
     Dates: start: 20111117, end: 20121028

REACTIONS (11)
  - Oesophageal varices haemorrhage [Fatal]
  - Haematemesis [Fatal]
  - Renal failure [Not Recovered/Not Resolved]
  - Anuria [Not Recovered/Not Resolved]
  - Palpitations [Recovered/Resolved]
  - White blood cell count decreased [Recovering/Resolving]
  - Prothrombin level decreased [Not Recovered/Not Resolved]
  - Blood urea decreased [Recovered/Resolved]
  - Blood urea increased [None]
  - Blood creatinine increased [Recovering/Resolving]
  - Blood chloride increased [None]
